FAERS Safety Report 5578703-5 (Version None)
Quarter: 2007Q4

REPORT INFORMATION
  Report Type: 
  Country: None (occurrence: None)
  Receive Date: 20071227
  Receipt Date: 20071211
  Transmission Date: 20080405
  Serious: Yes (Death)
  Sender: FDA-Public Use
  Company Number: 2007EU002721

PATIENT
  Age: 30 Year
  Sex: Male
  Weight: 90 kg

DRUGS (3)
  1. PROGRAF [Suspect]
     Indication: IMMUNOSUPPRESSION
     Dosage: 18  MG, D, ORAL
     Route: 048
     Dates: start: 20071114, end: 20071202
  2. CELLCEPT [Concomitant]
  3. METHYLPREDNISOLONE [Concomitant]

REACTIONS (2)
  - TRANSPLANT FAILURE [None]
  - TRANSPLANT REJECTION [None]
